FAERS Safety Report 18065228 (Version 1)
Quarter: 2020Q3

REPORT INFORMATION
  Report Type: Spontaneous
  Country: US (occurrence: US)
  Receive Date: 20200724
  Receipt Date: 20200724
  Transmission Date: 20201103
  Serious: Yes (Other)
  Sender: FDA-Public Use
  Company Number: US-BAYER-2020-142203

PATIENT
  Sex: Male

DRUGS (3)
  1. AFRIN ORIGINAL [Suspect]
     Active Substance: OXYMETAZOLINE HYDROCHLORIDE
     Indication: PRODUCT USED FOR UNKNOWN INDICATION
     Dosage: 3 HUGE SQUIRTS UP HIS NOSE EVERY 6 HOURS DOSE
     Route: 055
  2. ALEVE [Concomitant]
     Active Substance: NAPROXEN SODIUM
     Dosage: UNK
     Route: 065
  3. ANTI DIABETIC [Concomitant]

REACTIONS (9)
  - Epistaxis [Not Recovered/Not Resolved]
  - Anosmia [Not Recovered/Not Resolved]
  - Drug dependence [Not Recovered/Not Resolved]
  - Inappropriate schedule of product administration [Unknown]
  - Ageusia [Not Recovered/Not Resolved]
  - Wrong technique in product usage process [Unknown]
  - Dyspnoea [Unknown]
  - Drug ineffective [Unknown]
  - Extra dose administered [Unknown]
